FAERS Safety Report 4305392-X (Version None)
Quarter: 2004Q1

REPORT INFORMATION
  Report Type: 
  Country: None (occurrence: None)
  Receive Date: 20040226
  Receipt Date: 20031001
  Transmission Date: 20041129
  Serious: No
  Sender: FDA-Public Use
  Company Number: US-BRISTOL-MYERS SQUIBB COMPANY-12398798

PATIENT
  Age: 40 Year
  Sex: Female
  Weight: 69 kg

DRUGS (5)
  1. TAXOL [Suspect]
     Indication: BREAST CANCER
     Dosage: DOSAGE = 144 MG/500 ML D5W
     Route: 042
     Dates: start: 20030901
  2. BENADRYL [Concomitant]
     Indication: PREMEDICATION
     Route: 042
  3. DECADRON [Concomitant]
     Indication: PREMEDICATION
     Route: 042
  4. PEPCID [Concomitant]
     Indication: PREMEDICATION
     Route: 042
  5. ATIVAN [Concomitant]
     Indication: PREMEDICATION
     Route: 042

REACTIONS (2)
  - ARTHRALGIA [None]
  - MYALGIA [None]
